FAERS Safety Report 18711102 (Version 1)
Quarter: 2021Q1

REPORT INFORMATION
  Report Type: Spontaneous
  Country: US (occurrence: US)
  Receive Date: 20210107
  Receipt Date: 20210107
  Transmission Date: 20210419
  Serious: No
  Sender: FDA-Public Use
  Company Number: US-ASTRAZENECA-2020SF67697

PATIENT
  Sex: Female
  Weight: 22.1 kg

DRUGS (1)
  1. FASENRA [Suspect]
     Active Substance: BENRALIZUMAB
     Indication: ASTHMA
     Dosage: 30 MG, EVERY 4 WEEKS FOR THE FIRST 3 DOSES, THEN EVERY 8 WEEKS.
     Route: 058
     Dates: start: 20201030

REACTIONS (3)
  - Blepharospasm [Unknown]
  - Alopecia [Unknown]
  - Restless legs syndrome [Unknown]
